FAERS Safety Report 24873898 (Version 3)
Quarter: 2025Q1

REPORT INFORMATION
  Report Type: Spontaneous
  Country: US (occurrence: US)
  Receive Date: 20250122
  Receipt Date: 20250301
  Transmission Date: 20250409
  Serious: Yes (Death, Hospitalization)
  Sender: SANOFI AVENTIS
  Company Number: US-SA-2025SA020189

PATIENT
  Age: 83 Year
  Sex: Male
  Weight: 114.55 kg

DRUGS (29)
  1. KEVZARA [Suspect]
     Active Substance: SARILUMAB
     Indication: Rheumatoid arthritis
     Dosage: 200 MG, QOW
     Route: 058
     Dates: start: 20180709, end: 202501
  2. DAVESOMERAN\ELASOMERAN [Concomitant]
     Active Substance: DAVESOMERAN\ELASOMERAN
     Indication: Immunisation
  3. SHINGRIX [Concomitant]
     Active Substance: RECOMBINANT VARICELLA ZOSTER VIRUS (VZV) GLYCOPROTEIN E
     Indication: Immunisation
  4. BCG VACCINE [Concomitant]
     Active Substance: BCG VACCINE
     Indication: Immunisation
  5. PNEUMOVAX 23 [Concomitant]
     Active Substance: PNEUMOCOCCAL VACCINE, POLYVALENT 23
     Indication: Immunisation
  6. FLUCELVAX QUADRIVALENT 2017/2018 (INFLUENZA A VIRUS A/DARWIN/11/2021 ( [Concomitant]
     Active Substance: INFLUENZA A VIRUS A/DARWIN/11/2021 (H3N2) ANTIGEN (MDCK CELL DERIVED, PROPIOLACTONE INACTIVATED)\INF
     Indication: Immunisation
  7. QUADRACEL [Concomitant]
     Active Substance: DIPHTHERIA AND TETANUS TOXOIDS AND ACELLULAR PERTUSSIS ADSORBED AND INACTIVATED POLIOVIRUS VACCINE
     Indication: Immunisation
  8. MYRBETRIQ [Concomitant]
     Active Substance: MIRABEGRON
     Dosage: 50 MG, QD
  9. METHOTREXATE [Concomitant]
     Active Substance: METHOTREXATE
  10. MOMETASONE FUROATE [Concomitant]
     Active Substance: MOMETASONE FUROATE
  11. TORSEMIDE [Concomitant]
     Active Substance: TORSEMIDE
  12. CARBIDOPA AND LEVODOPA [Concomitant]
     Active Substance: CARBIDOPA\LEVODOPA
  13. MIRALAX [Concomitant]
     Active Substance: POLYETHYLENE GLYCOL 3350
  14. OMEGA-3-ACID ETHYL ESTER [Concomitant]
     Active Substance: OMEGA-3-ACID ETHYL ESTERS
  15. GABAPENTIN [Concomitant]
     Active Substance: GABAPENTIN
  16. METOPROLOL SUCCINATE [Concomitant]
     Active Substance: METOPROLOL SUCCINATE
  17. ATORVASTATIN CALCIUM [Concomitant]
     Active Substance: ATORVASTATIN CALCIUM
  18. TAMSULOSIN HYDROCHLORIDE [Concomitant]
     Active Substance: TAMSULOSIN HYDROCHLORIDE
  19. XARELTO [Concomitant]
     Active Substance: RIVAROXABAN
  20. VITAMINS [Concomitant]
     Active Substance: VITAMINS
  21. MYRBETRIQ [Concomitant]
     Active Substance: MIRABEGRON
     Dosage: 25 MG, QD
  22. POTASSIUM CITRATE [Concomitant]
     Active Substance: POTASSIUM CITRATE
  23. VITAMIN E [Concomitant]
     Active Substance: .ALPHA.-TOCOPHEROL
  24. RASAGILINE MESYLATE [Concomitant]
     Active Substance: RASAGILINE MESYLATE
  25. DONEPEZIL HYDROCHLORIDE [Concomitant]
     Active Substance: DONEPEZIL HYDROCHLORIDE
  26. TRAMADOL HCL [Concomitant]
     Active Substance: TRAMADOL HYDROCHLORIDE
  27. CITALOPRAM [Concomitant]
     Active Substance: CITALOPRAM
  28. LISINOPRIL [Concomitant]
     Active Substance: LISINOPRIL
  29. CITALOPRAM HYDROBROMIDE [Concomitant]
     Active Substance: CITALOPRAM HYDROBROMIDE

REACTIONS (1)
  - Cardiac disorder [Fatal]
